FAERS Safety Report 6068747-1 (Version None)
Quarter: 2009Q1

REPORT INFORMATION
  Report Type: 
  Country: None (occurrence: None)
  Receive Date: 20090206
  Receipt Date: 20090204
  Transmission Date: 20090719
  Serious: Yes (Hospitalization)
  Sender: FDA-Public Use
  Company Number: RU-BRISTOL-MYERS SQUIBB COMPANY-14427710

PATIENT
  Age: 58 Year
  Sex: Male

DRUGS (3)
  1. ABATACEPT [Suspect]
     Indication: RHEUMATOID ARTHRITIS
     Route: 042
     Dates: start: 20040525
  2. METHOTREXATE [Concomitant]
     Dates: start: 20030111
  3. METHYLPREDNISOLONE 4MG TAB [Concomitant]
     Dates: start: 20030111

REACTIONS (1)
  - ANGINA UNSTABLE [None]
